FAERS Safety Report 21296689 (Version 1)
Quarter: 2022Q3

REPORT INFORMATION
  Report Type: Spontaneous
  Country: JP (occurrence: JP)
  Receive Date: 20220906
  Receipt Date: 20220906
  Transmission Date: 20221027
  Serious: Yes (Hospitalization)
  Sender: FDA-Public Use
  Company Number: JP-MSD-2201JPN003194J

PATIENT
  Age: 92 Year
  Sex: Female
  Weight: 30 kg

DRUGS (1)
  1. STROMECTOL [Suspect]
     Active Substance: IVERMECTIN
     Indication: Acarodermatitis
     Dosage: 4 DOSAGE FORM, QW
     Route: 048
     Dates: start: 20220114, end: 20220121

REACTIONS (5)
  - Dehydration [Recovered/Resolved]
  - Asteatosis [Unknown]
  - Blister [Recovered/Resolved]
  - Pruritus [Unknown]
  - Off label use [Unknown]

NARRATIVE: CASE EVENT DATE: 20220101
